FAERS Safety Report 20716881 (Version 2)
Quarter: 2022Q2

REPORT INFORMATION
  Report Type: Spontaneous
  Country: US (occurrence: US)
  Receive Date: 20220416
  Receipt Date: 20220620
  Transmission Date: 20220721
  Serious: Yes (Other)
  Sender: FDA-Public Use
  Company Number: US-BRISTOL-MYERS SQUIBB COMPANY-2022-021075

PATIENT
  Age: 85 Year
  Sex: Female
  Weight: 73.028 kg

DRUGS (2)
  1. REVLIMID [Suspect]
     Active Substance: LENALIDOMIDE
     Indication: Plasma cell myeloma
     Dosage: DAILY AT BED 21 DAY ON 7 DAY OFF
     Route: 048
     Dates: start: 20220317
  2. REVLIMID [Suspect]
     Active Substance: LENALIDOMIDE
     Dosage: 2.5 MILLIGRAM DAILY
     Route: 048

REACTIONS (2)
  - Pancytopenia [Unknown]
  - Skin lesion [Unknown]

NARRATIVE: CASE EVENT DATE: 20220501
